FAERS Safety Report 5096738-6 (Version None)
Quarter: 2006Q3

REPORT INFORMATION
  Report Type: 
  Country: None (occurrence: None)
  Receive Date: 20060831
  Receipt Date: 20060824
  Transmission Date: 20061208
  Serious: Yes (Hospitalization)
  Sender: FDA-Public Use
  Company Number: 2006-04664

PATIENT
  Age: 46 Year
  Sex: Male

DRUGS (4)
  1. CITALOPRAM HYDROBROMIDE [Suspect]
     Dosage: 1 TABLET, DAILY, ORAL
     Route: 048
  2. DEXTROMETHORPHAN (DAY + NIGHT) (DEXTROMETHORPHAN) [Suspect]
     Indication: NASOPHARYNGITIS
  3. METHADONE HCL [Concomitant]
  4. GABAPENTIN [Concomitant]

REACTIONS (2)
  - DRUG INTERACTION [None]
  - SEROTONIN SYNDROME [None]
